FAERS Safety Report 12067293 (Version 1)
Quarter: 2016Q1

REPORT INFORMATION
  Report Type: Spontaneous
  Country: US (occurrence: None)
  Receive Date: 20160210
  Receipt Date: 20160210
  Transmission Date: 20160526
  Serious: No
  Sender: FDA-Public Use
  Company Number: None

PATIENT
  Age: 4 Year
  Sex: Female
  Weight: 13.61 kg

DRUGS (6)
  1. EPIPEN [Suspect]
     Active Substance: EPINEPHRINE
  2. QVAR [Concomitant]
     Active Substance: BECLOMETHASONE DIPROPIONATE
  3. ALBUTEROL. [Concomitant]
     Active Substance: ALBUTEROL
  4. PROBIOTIC [Concomitant]
     Active Substance: PROBIOTICS NOS
  5. FLUORIDE TABLETS [Concomitant]
  6. GUMMY VITAMIN [Concomitant]

REACTIONS (4)
  - Injection site pain [None]
  - Needle issue [None]
  - Pain in extremity [None]
  - Injection site bruising [None]

NARRATIVE: CASE EVENT DATE: 20160208
